FAERS Safety Report 4538556-0 (Version None)
Quarter: 2004Q4

REPORT INFORMATION
  Report Type: 
  Country: None (occurrence: None)
  Receive Date: 20041222
  Receipt Date: 20041213
  Transmission Date: 20050328
  Serious: Yes (Death)
  Sender: FDA-Public Use
  Company Number: F01200403909

PATIENT
  Age: 60 Year
  Sex: Male

DRUGS (5)
  1. OXALIPLATIN [Suspect]
     Indication: COLORECTAL CANCER METASTATIC
     Dosage: 157 MG Q3W INTRAVENOUS NOS
     Route: 042
  2. FLUOROURACIL [Suspect]
     Dosage: 740 MG IV BOLUS AND 1110 MG IV CONT INFU Q2W INTRAVENOUS NOS
     Route: 042
  3. LEUCOVORIN [Suspect]
     Dosage: 370 MG Q2W
     Route: 042
  4. BEVACIZUMAB OR PLACEBO - SOLUTION - 355 MG [Suspect]
     Dosage: 355 MG Q2W INTRAVENOUS NOS
     Route: 042
  5. ONDANSETRON (ONDANSETRON HYDROCHLORIDE) [Concomitant]

REACTIONS (1)
  - EMBOLISM [None]
